FAERS Safety Report 24436466 (Version 3)
Quarter: 2025Q1

REPORT INFORMATION
  Report Type: Report from Study
  Country: US (occurrence: US)
  Receive Date: 20241015
  Receipt Date: 20250210
  Transmission Date: 20250408
  Serious: Yes (Other)
  Sender: NOVARTIS
  Company Number: US-002147023-NVSC2024US200671

PATIENT
  Sex: Male

DRUGS (1)
  1. KESIMPTA [Suspect]
     Active Substance: OFATUMUMAB
     Indication: Relapsing multiple sclerosis
     Dosage: 20 MG, QMO
     Route: 058
     Dates: start: 20231014

REACTIONS (6)
  - Multiple sclerosis relapse [Not Recovered/Not Resolved]
  - Memory impairment [Not Recovered/Not Resolved]
  - Hypoaesthesia [Not Recovered/Not Resolved]
  - Asthenia [Not Recovered/Not Resolved]
  - Pain [Not Recovered/Not Resolved]
  - Therapeutic response shortened [Not Recovered/Not Resolved]
